FAERS Safety Report 11748980 (Version 1)
Quarter: 2015Q4

REPORT INFORMATION
  Report Type: Spontaneous
  Country: GB (occurrence: GB)
  Receive Date: 20151118
  Receipt Date: 20151118
  Transmission Date: 20160304
  Serious: Yes (Other)
  Sender: FDA-Public Use
  Company Number: GB-AUROBINDO-AUR-APL-2015-10075

PATIENT
  Age: 75 Year
  Sex: Female

DRUGS (4)
  1. XARELTO [Suspect]
     Active Substance: RIVAROXABAN
     Indication: CEREBROVASCULAR ACCIDENT PROPHYLAXIS
     Dosage: UNK
     Route: 065
  2. BISOPROLOL 2.5 MG [Suspect]
     Active Substance: BISOPROLOL
     Indication: PRODUCT USED FOR UNKNOWN INDICATION
     Dosage: 1.25 MG, QD
     Route: 065
     Dates: end: 20150617
  3. BISOPROLOL 2.5 MG [Suspect]
     Active Substance: BISOPROLOL
     Dosage: 2.5 MG, QD
     Dates: start: 20150617
  4. XARELTO [Suspect]
     Active Substance: RIVAROXABAN
     Indication: ATRIAL FIBRILLATION
     Dosage: 20 MG, UNK
     Route: 065
     Dates: start: 20150603

REACTIONS (5)
  - Headache [Unknown]
  - Nasal pruritus [Unknown]
  - Joint swelling [Unknown]
  - Dyspnoea [Unknown]
  - Rhinorrhoea [Unknown]
